FAERS Safety Report 10457516 (Version 1)
Quarter: 2014Q3

REPORT INFORMATION
  Report Type: Spontaneous
  Country: CL (occurrence: CL)
  Receive Date: 20140916
  Receipt Date: 20140916
  Transmission Date: 20150326
  Serious: Yes (Other)
  Sender: FDA-Public Use
  Company Number: CL-PFIZER INC-2014254699

PATIENT
  Age: 92 Year
  Sex: Female

DRUGS (8)
  1. ACETAMINOPHEN. [Concomitant]
     Active Substance: ACETAMINOPHEN
     Dosage: UNK
  2. XALATAN [Suspect]
     Active Substance: LATANOPROST
     Indication: GLAUCOMA
     Dosage: 1 GTT, 1X/DAY FOR EACH EYE
     Route: 047
     Dates: start: 2008
  3. TIMOLOL [Concomitant]
     Active Substance: TIMOLOL
     Dosage: UNK
  4. ASPIRIN ^BAYER^ [Concomitant]
     Active Substance: ASPIRIN
     Dosage: UNK
  5. TRADAXIN [Concomitant]
     Dosage: UNK
  6. DAMIXAN [Concomitant]
     Dosage: UNK
  7. METOCLOPRAMIDE. [Concomitant]
     Active Substance: METOCLOPRAMIDE
     Dosage: UNK
  8. PROPANOLOL [Concomitant]
     Active Substance: PROPRANOLOL HYDROCHLORIDE
     Dosage: UNK

REACTIONS (3)
  - Dementia Alzheimer^s type [Not Recovered/Not Resolved]
  - Thyroid cancer [Not Recovered/Not Resolved]
  - Bedridden [Not Recovered/Not Resolved]

NARRATIVE: CASE EVENT DATE: 2009
